FAERS Safety Report 24339925 (Version 1)
Quarter: 2024Q3

REPORT INFORMATION
  Report Type: Spontaneous
  Country: US (occurrence: None)
  Receive Date: 20240919
  Receipt Date: 20240919
  Transmission Date: 20241017
  Serious: Yes (Other)
  Sender: Public
  Company Number: None

PATIENT
  Age: 70 Year
  Sex: Female

DRUGS (1)
  1. POMALYST [Suspect]
     Active Substance: POMALIDOMIDE
     Indication: Plasma cell myeloma
     Dosage: 2MG QD ORAL
     Route: 048
     Dates: start: 20220518, end: 20240229

REACTIONS (2)
  - Flushing [None]
  - Thrombosis [None]

NARRATIVE: CASE EVENT DATE: 20240918
